FAERS Safety Report 13495494 (Version 1)
Quarter: 2017Q2

REPORT INFORMATION
  Report Type: Spontaneous
  Country: US (occurrence: US)
  Receive Date: 20170427
  Receipt Date: 20170427
  Transmission Date: 20170830
  Serious: No
  Sender: FDA-Public Use
  Company Number: None

PATIENT
  Age: 79 Year
  Sex: Male

DRUGS (1)
  1. SUTENT [Suspect]
     Active Substance: SUNITINIB MALATE
     Indication: PRODUCT USED FOR UNKNOWN INDICATION
     Dosage: FREQUENCY - TAKE 1 CAPSULE DAILY FOR 4 WEEKS ON THEN 2 WEEKS OFF
     Route: 048
     Dates: start: 20170309

REACTIONS (1)
  - Asthenia [None]

NARRATIVE: CASE EVENT DATE: 20170427
